FAERS Safety Report 9687790 (Version 1)
Quarter: 2013Q4

REPORT INFORMATION
  Report Type: Spontaneous
  Country: US (occurrence: US)
  Receive Date: 20131114
  Receipt Date: 20131114
  Transmission Date: 20140711
  Serious: No
  Sender: FDA-Public Use
  Company Number: US-PFIZER INC-2013324970

PATIENT
  Age: 8 Year
  Sex: Male
  Weight: 22.68 kg

DRUGS (2)
  1. ZOLOFT [Suspect]
     Indication: ANXIETY
     Dosage: 37.5 MG, 1X/DAY
     Dates: start: 20130915
  2. ABILIFY [Concomitant]
     Indication: MOOD SWINGS
     Dosage: UNK

REACTIONS (3)
  - Wrong technique in drug usage process [Unknown]
  - Malaise [Unknown]
  - Anxiety [Unknown]
